FAERS Safety Report 4611079-6 (Version None)
Quarter: 2005Q1

REPORT INFORMATION
  Report Type: 
  Country: None (occurrence: None)
  Receive Date: 20050316
  Receipt Date: 20050316
  Transmission Date: 20050727
  Serious: Yes (Death)
  Sender: FDA-Public Use
  Company Number: None

PATIENT
  Age: 53 Year
  Sex: Female
  Weight: 50.8029 kg

DRUGS (1)
  1. MAXALT [Suspect]
     Indication: MIGRAINE
     Dosage: SUBLINGUAL
     Route: 060
     Dates: start: 20041223

REACTIONS (9)
  - ASTHENIA [None]
  - BRAIN HERNIATION [None]
  - CEREBRAL VASOCONSTRICTION [None]
  - CEREBROVASCULAR ACCIDENT [None]
  - COMA [None]
  - DRUG INEFFECTIVE [None]
  - HAEMORRHAGE [None]
  - HEADACHE [None]
  - PARALYSIS [None]
